FAERS Safety Report 8002520-X (Version None)
Quarter: 2011Q4

REPORT INFORMATION
  Report Type: 
  Country: None (occurrence: None)
  Receive Date: 20111219
  Receipt Date: 20111206
  Transmission Date: 20120403
  Serious: Yes (Congenital Anomaly)
  Sender: FDA-Public Use
  Company Number: E2B_00000140

PATIENT
  Sex: Female
  Weight: 3.5 kg

DRUGS (2)
  1. INSULIN HUMAN (BERLINSULIN H NORMAL) [Concomitant]
  2. LAMOTRIGINE [Suspect]
     Indication: EPILEPSY
     Dosage: 50 MG (25 MG, 2 IN 1 D) TRANSPLACENTAL
     Route: 064

REACTIONS (3)
  - PULMONARY VALVE INCOMPETENCE [None]
  - FOETAL EXPOSURE DURING PREGNANCY [None]
  - CAESAREAN SECTION [None]
